FAERS Safety Report 7884621-X (Version None)
Quarter: 2011Q4

REPORT INFORMATION
  Report Type: 
  Country: None (occurrence: None)
  Receive Date: 20111102
  Receipt Date: 20111022
  Transmission Date: 20120403
  Serious: Yes (Other)
  Sender: FDA-Public Use
  Company Number: EG-MERCK-1110USA03755

PATIENT
  Age: 60 Year
  Sex: Male
  Weight: 83 kg

DRUGS (8)
  1. ZOCOR [Suspect]
     Indication: HYPERCHOLESTEROLAEMIA
     Route: 048
     Dates: end: 20110926
  2. ATENOLOL [Concomitant]
     Indication: HYPERTENSION
     Dosage: 16/125
     Route: 065
     Dates: start: 20110416
  3. JANUMET [Suspect]
     Indication: DIABETES MELLITUS
     Route: 065
     Dates: start: 20100926, end: 20111016
  4. CARDURA [Concomitant]
     Route: 048
     Dates: start: 20110502
  5. FELODIPINE [Concomitant]
     Indication: HYPERTENSION
     Route: 048
     Dates: start: 20110502
  6. LIVALO [Suspect]
     Route: 065
  7. METFORMIN [Concomitant]
     Route: 065
  8. ASPIRIN [Concomitant]
     Indication: ANTIPLATELET THERAPY
     Route: 048
     Dates: start: 20110117

REACTIONS (10)
  - ALANINE AMINOTRANSFERASE INCREASED [None]
  - BLOOD CALCIUM INCREASED [None]
  - BILIARY DILATATION [None]
  - LIPASE INCREASED [None]
  - ASPARTATE AMINOTRANSFERASE INCREASED [None]
  - ABDOMINAL PAIN [None]
  - BLOOD ALKALINE PHOSPHATASE INCREASED [None]
  - BLOOD AMYLASE INCREASED [None]
  - GAMMA-GLUTAMYLTRANSFERASE INCREASED [None]
  - OEDEMA PERIPHERAL [None]
